FAERS Safety Report 19431712 (Version 2)
Quarter: 2021Q3

REPORT INFORMATION
  Report Type: Report from Study
  Country: US (occurrence: US)
  Receive Date: 20210617
  Receipt Date: 20210917
  Transmission Date: 20211014
  Serious: Yes (Hospitalization)
  Sender: FDA-Public Use
  Company Number: US-ROCHE-2847504

PATIENT
  Age: 51 Year
  Sex: Female
  Weight: 61.2 kg

DRUGS (2)
  1. OBINUTUZUMAB. [Suspect]
     Active Substance: OBINUTUZUMAB
     Indication: CHRONIC LYMPHOCYTIC LEUKAEMIA
     Dosage: 100 MG IV ON DAY 1, CYCLE 1, 900 MG IV ON DAY 2, CYCLE 1, 1000 MG IV ON DAY 8, CYCLE 1, 1000 MG IV O
     Route: 042
     Dates: start: 20200708
  2. IBRUTINIB [Suspect]
     Active Substance: IBRUTINIB
     Indication: CHRONIC LYMPHOCYTIC LEUKAEMIA
     Dosage: DATE OF MOST RECENT DOSE OF IBRUTINIB PRIOR TO SAE ONSET: 23/MAY/2021?TOTAL DOSE ADMINISTERED THIS C
     Route: 048
     Dates: start: 20200708

REACTIONS (2)
  - Joint effusion [Not Recovered/Not Resolved]
  - Vaginal infection [Not Recovered/Not Resolved]

NARRATIVE: CASE EVENT DATE: 20210518
